FAERS Safety Report 18057357 (Version 2)
Quarter: 2020Q3

REPORT INFORMATION
  Report Type: Spontaneous
  Country: FR (occurrence: FR)
  Receive Date: 20200722
  Receipt Date: 20200729
  Transmission Date: 20201103
  Serious: Yes (Other)
  Sender: FDA-Public Use
  Company Number: NVSC2020FR199849

PATIENT
  Age: 63 Year
  Sex: Female

DRUGS (3)
  1. FLODIL [FELODIPINE] [Suspect]
     Active Substance: FELODIPINE
     Indication: HYPERTENSION
     Dosage: 5 MG, QD
     Route: 048
  2. FLODIL [FELODIPINE] [Suspect]
     Active Substance: FELODIPINE
     Dosage: 5 MG, Q12H
     Route: 048
     Dates: start: 19970318
  3. METOPROLOL. [Suspect]
     Active Substance: METOPROLOL
     Indication: HYPERTENSION
     Dosage: UNK
     Route: 065
     Dates: start: 19970318, end: 2017

REACTIONS (4)
  - Tachycardia [Unknown]
  - Hypotension [Unknown]
  - Atrioventricular block [Not Recovered/Not Resolved]
  - Palpitations [Unknown]

NARRATIVE: CASE EVENT DATE: 2016
